FAERS Safety Report 7176619-4 (Version None)
Quarter: 2010Q4

REPORT INFORMATION
  Report Type: 
  Country: None (occurrence: None)
  Receive Date: 20101220
  Receipt Date: 20101214
  Transmission Date: 20110411
  Serious: Yes (Life-Threatening, Other)
  Sender: FDA-Public Use
  Company Number: PHHY2010CA85177

PATIENT
  Sex: Female

DRUGS (15)
  1. ACLASTA [Suspect]
     Indication: OSTEOPOROSIS
     Dosage: UNK
     Route: 042
     Dates: start: 20080212
  2. ACLASTA [Suspect]
     Dosage: UNK
     Route: 042
     Dates: start: 20100205, end: 20100212
  3. DILANTIN [Concomitant]
  4. DURAGESIC-100 [Concomitant]
  5. LIBRIUM [Concomitant]
  6. ATACAND HCT [Concomitant]
  7. PANTOLOC [Concomitant]
  8. ATIVAN [Concomitant]
  9. VENTOLIN [Concomitant]
  10. SPIRIVA [Concomitant]
  11. ADVAIR [Concomitant]
  12. NASONEX [Concomitant]
  13. NORVASC [Concomitant]
  14. CAL [Concomitant]
  15. VITAMIN D [Concomitant]

REACTIONS (2)
  - BREAST CANCER [None]
  - LUNG NEOPLASM MALIGNANT [None]
